FAERS Safety Report 9357972 (Version 1)
Quarter: 2013Q2

REPORT INFORMATION
  Report Type: Spontaneous
  Country: US (occurrence: US)
  Receive Date: 20130620
  Receipt Date: 20130620
  Transmission Date: 20140414
  Serious: No
  Sender: FDA-Public Use
  Company Number: US-PFIZER INC-2013179892

PATIENT
  Sex: Female

DRUGS (1)
  1. REVATIO [Suspect]
     Indication: CARDIAC FAILURE CONGESTIVE
     Dosage: UNK

REACTIONS (2)
  - Alopecia [Unknown]
  - Off label use [Unknown]
